FAERS Safety Report 13767790 (Version 1)
Quarter: 2017Q3

REPORT INFORMATION
  Report Type: Spontaneous
  Country: NL (occurrence: NL)
  Receive Date: 20170719
  Receipt Date: 20170719
  Transmission Date: 20171127
  Serious: Yes (Hospitalization)
  Sender: FDA-Public Use
  Company Number: NL-PFIZER INC-2017310616

PATIENT
  Age: 57 Year
  Sex: Male
  Weight: 73 kg

DRUGS (8)
  1. CHAMPIX [Suspect]
     Active Substance: VARENICLINE TARTRATE
     Indication: SMOKING CESSATION THERAPY
     Dosage: 1 MG, 1X/DAY
     Route: 048
     Dates: start: 2017, end: 20170302
  2. TRANXENE T-TAB [Concomitant]
     Active Substance: CLORAZEPATE DIPOTASSIUM
     Dosage: 5 MG, 1X/DAY
     Route: 048
  3. ATORVASTATIN CALCIUM TRIHYDRATE [Concomitant]
     Active Substance: ATORVASTATIN CALCIUM
     Dosage: 80 MG, 1X/DAY
     Route: 048
  4. PANTOPRAZOL [Concomitant]
     Active Substance: PANTOPRAZOLE SODIUM
     Dosage: 40 MG, 1X/DAY
     Route: 048
  5. HYDROCHLOORTHIAZIDE [Concomitant]
     Active Substance: HYDROCHLOROTHIAZIDE
     Dosage: 12.5 MG, 1X/DAY
     Route: 048
  6. ASCAL CARDIO [Concomitant]
     Active Substance: CARBASPIRIN
     Dosage: 100 MG, 1X/DAY
     Route: 048
  7. PERINDOPRIL ERBUMINE. [Concomitant]
     Active Substance: PERINDOPRIL ERBUMINE
     Dosage: 8 MG, 1X/DAY
     Route: 048
  8. METOPROLOL TARTRAS [Concomitant]
     Dosage: 100 MG, 1X/DAY
     Route: 048

REACTIONS (2)
  - Liver function test abnormal [Recovering/Resolving]
  - Rhabdomyolysis [Unknown]

NARRATIVE: CASE EVENT DATE: 2017
